FAERS Safety Report 25672879 (Version 1)
Quarter: 2025Q3

REPORT INFORMATION
  Report Type: Spontaneous
  Country: US (occurrence: US)
  Receive Date: 20250812
  Receipt Date: 20250812
  Transmission Date: 20251020
  Serious: Yes (Other)
  Sender: PRINSTON PHARMACEUTICAL
  Company Number: US-PRINSTON PHARMACEUTICAL INC.-2024PRN00376

PATIENT
  Sex: Female

DRUGS (1)
  1. ROPINIROLE [Suspect]
     Active Substance: ROPINIROLE

REACTIONS (1)
  - Hallucination, visual [Unknown]
